FAERS Safety Report 25779417 (Version 1)
Quarter: 2025Q3

REPORT INFORMATION
  Report Type: Spontaneous
  Country: US (occurrence: US)
  Receive Date: 20250909
  Receipt Date: 20250909
  Transmission Date: 20251020
  Serious: Yes (Other)
  Sender: AMGEN
  Company Number: US-AMGEN-USASP2025175982

PATIENT

DRUGS (9)
  1. ROMOSOZUMAB [Suspect]
     Active Substance: ROMOSOZUMAB
     Indication: Osteoporosis
     Route: 065
  2. ROMOSOZUMAB [Suspect]
     Active Substance: ROMOSOZUMAB
  3. DENOSUMAB [Suspect]
     Active Substance: DENOSUMAB
     Indication: Osteoporosis
     Route: 065
  4. ALENDRONATE [Concomitant]
     Active Substance: ALENDRONATE SODIUM
  5. IBANDRONATE SODIUM [Concomitant]
     Active Substance: IBANDRONATE SODIUM
     Route: 040
  6. RISEDRONATE SODIUM [Concomitant]
     Active Substance: RISEDRONATE SODIUM
  7. ZOLEDRONIC ACID [Concomitant]
     Active Substance: ZOLEDRONIC ACID
  8. ABALOPARATIDE [Concomitant]
     Active Substance: ABALOPARATIDE
  9. TERIPARATIDE [Concomitant]
     Active Substance: TERIPARATIDE

REACTIONS (1)
  - Pathological fracture [Unknown]
